FAERS Safety Report 24810179 (Version 2)
Quarter: 2025Q1

REPORT INFORMATION
  Report Type: Spontaneous
  Country: US (occurrence: US)
  Receive Date: 20250106
  Receipt Date: 20250116
  Transmission Date: 20250409
  Serious: Yes (Other)
  Sender: BAYER HEALTHCARE LLC
  Company Number: US-BAYER-2025A001066

PATIENT
  Age: 75 Year
  Sex: Male

DRUGS (1)
  1. ASPIRIN [Suspect]
     Active Substance: ASPIRIN
     Indication: Antiplatelet therapy

REACTIONS (2)
  - Gastrointestinal haemorrhage [None]
  - Iron deficiency anaemia [None]
